FAERS Safety Report 5963874-9 (Version None)
Quarter: 2008Q4

REPORT INFORMATION
  Report Type: 
  Country: None (occurrence: None)
  Receive Date: 20081121
  Receipt Date: 20081121
  Transmission Date: 20090506
  Serious: Yes (Other)
  Sender: FDA-Public Use
  Company Number: None

PATIENT
  Age: 31 Year
  Sex: Male

DRUGS (2)
  1. OPTIRAY 350 [Suspect]
     Indication: COMPUTERISED TOMOGRAM
     Dosage: 100ML X1 IV
     Route: 042
     Dates: start: 20081028
  2. OPTIRAY 350 [Suspect]

REACTIONS (2)
  - COUGH [None]
  - THROAT TIGHTNESS [None]
